FAERS Safety Report 8335011-7 (Version None)
Quarter: 2012Q1

REPORT INFORMATION
  Report Type: 
  Country: None (occurrence: None)
  Receive Date: 20120329
  Receipt Date: 20090227
  Transmission Date: 20120608
  Serious: Yes (Other)
  Sender: FDA-Public Use
  Company Number: PHEH2008US10629

PATIENT
  Age: 78 Year
  Sex: Female

DRUGS (8)
  1. METOPROLOL TARTRATE [Concomitant]
  2. VASOTEC [Concomitant]
  3. NEXIUM [Concomitant]
  4. FELODIPINE [Concomitant]
  5. HYDROCHLOROTHIAZIDE [Concomitant]
  6. SIMVASTATIN [Concomitant]
  7. SERTRALINE HYDROCHLORIDE [Concomitant]
  8. EXELON [Suspect]
     Dosage: 4.6 MG, UNK, TRANSDERMAL
     Route: 062
     Dates: start: 20080901

REACTIONS (5)
  - MALAISE [None]
  - NASOPHARYNGITIS [None]
  - ASTHENIA [None]
  - PNEUMONIA [None]
  - DRUG INEFFECTIVE [None]
